FAERS Safety Report 9224141 (Version 1)
Quarter: 2013Q2

REPORT INFORMATION
  Report Type: Spontaneous
  Country: US (occurrence: US)
  Receive Date: 20130411
  Receipt Date: 20130411
  Transmission Date: 20140414
  Serious: No
  Sender: FDA-Public Use
  Company Number: US-PFIZER INC-2013113078

PATIENT
  Age: 79 Year
  Sex: Male

DRUGS (5)
  1. SUTENT [Suspect]
     Indication: RENAL CELL CARCINOMA
     Dosage: 25 MG, UNK
     Dates: start: 20130220
  2. CALCITRIOL [Concomitant]
     Dosage: UNK
  3. IMODIUM A-D [Concomitant]
     Dosage: UNK
  4. LEVOTHYROXINE SODIUM [Concomitant]
     Dosage: UNK
  5. OYSTER SHELL CALCIUM [Concomitant]
     Dosage: UNK

REACTIONS (1)
  - Fatigue [Unknown]
